FAERS Safety Report 7427050-5 (Version None)
Quarter: 2011Q2

REPORT INFORMATION
  Report Type: 
  Country: None (occurrence: None)
  Receive Date: 20110420
  Receipt Date: 20081118
  Transmission Date: 20111010
  Serious: Yes (Death, Hospitalization)
  Sender: FDA-Public Use
  Company Number: US-BAYER-200839150NA

PATIENT
  Age: 67 Year
  Sex: Male
  Weight: 73.016 kg

DRUGS (22)
  1. AMIODARONE [Concomitant]
     Dosage: 150
     Route: 042
     Dates: start: 20061201
  2. REGLAN [Concomitant]
     Dosage: 10 MG Q6H PRN
     Route: 042
     Dates: start: 20061130
  3. ZINACEF [Concomitant]
     Dosage: UNK
     Route: 042
     Dates: start: 20061201
  4. BENADRYL [Concomitant]
     Dosage: 25 MG, PRN
     Route: 048
     Dates: start: 20061130
  5. NOREPINEPHRINE BITARTRATE [Concomitant]
     Dosage: 16 MG, UNK
     Route: 042
     Dates: start: 20061201
  6. RED BLOOD CELLS [Concomitant]
     Dosage: 1 U, UNK
     Route: 042
     Dates: start: 20061201
  7. POTASSIUM [Concomitant]
     Dosage: 20 MEQ, BID
     Route: 048
  8. METOLAZONE [Concomitant]
     Dosage: 5 MG, UNK
     Route: 048
     Dates: start: 20061001
  9. MILK OF MAGNESIA TAB [Concomitant]
     Dosage: 30 ML, PRN
     Route: 048
     Dates: start: 20061130
  10. HEPARIN [Concomitant]
     Dosage: 40000 U, UNK
     Route: 042
     Dates: start: 20061201
  11. PROTAMINE SULFATE [Concomitant]
     Dosage: 200 MG, UNK
     Route: 042
     Dates: start: 20061201
  12. METOPROLOL [Concomitant]
     Dosage: 25 MG, BID
     Route: 048
     Dates: start: 20061130
  13. INSULIN [Concomitant]
     Dosage: 125 U, UNK
     Route: 042
     Dates: start: 20061201
  14. MANNITOL [Concomitant]
     Dosage: 25
     Route: 042
     Dates: start: 20061201
  15. ACETAMINOPHEN [Concomitant]
     Dosage: 650 MG Q4-6H PRN
     Route: 048
     Dates: start: 20061130
  16. VASOPRESSIN [Concomitant]
     Dosage: 200 UNK, UNK
     Route: 042
     Dates: start: 20061201
  17. TRASYLOL [Suspect]
     Indication: PERICARDIAL EXCISION
     Dosage: 280 MG PUMP PRIME
     Route: 050
     Dates: start: 20061201, end: 20061201
  18. TRASYLOL [Suspect]
     Indication: TRICUSPID VALVE REPLACEMENT
  19. LASIX [Concomitant]
     Dosage: 80 MG, BID
     Route: 048
     Dates: start: 20061101
  20. CEFUROXIME [Concomitant]
     Dosage: 1.5 G, UNK
     Route: 042
     Dates: start: 20061201
  21. MILRINONE [Concomitant]
     Dosage: 0.5 MG, UNK
     Route: 042
     Dates: start: 20061201
  22. PROPOFOL [Concomitant]
     Dosage: 100 ML, UNK
     Route: 042
     Dates: start: 20061201

REACTIONS (8)
  - UNEVALUABLE EVENT [None]
  - PAIN [None]
  - CARDIOGENIC SHOCK [None]
  - RENAL FAILURE [None]
  - INJURY [None]
  - RENAL FAILURE ACUTE [None]
  - EMOTIONAL DISTRESS [None]
  - ANXIETY [None]
